FAERS Safety Report 5799322-1 (Version None)
Quarter: 2008Q3

REPORT INFORMATION
  Report Type: 
  Country: None (occurrence: None)
  Receive Date: 20080702
  Receipt Date: 20080620
  Transmission Date: 20090109
  Serious: Yes (Hospitalization)
  Sender: FDA-Public Use
  Company Number: TR-PFIZER INC-2008052584

PATIENT
  Sex: Male
  Weight: 84 kg

DRUGS (2)
  1. SU-011,248 [Suspect]
     Indication: METASTATIC RENAL CELL CARCINOMA
     Route: 048
     Dates: start: 20070517, end: 20070614
  2. SU-011,248 [Suspect]
     Route: 048
     Dates: start: 20070628, end: 20080618

REACTIONS (2)
  - CONVULSION [None]
  - HYPERTENSION [None]
